FAERS Safety Report 15978916 (Version 2)
Quarter: 2022Q2

REPORT INFORMATION
  Report Type: Spontaneous
  Country: CN (occurrence: CN)
  Receive Date: 20190219
  Receipt Date: 20220519
  Transmission Date: 20220720
  Serious: Yes (Hospitalization, Other)
  Sender: FDA-Public Use
  Company Number: CN-GLAXOSMITHKLINE-CN2019GSK028983

PATIENT
  Age: 18 Year
  Sex: Male

DRUGS (5)
  1. CEFUROXIME SODIUM [Suspect]
     Active Substance: CEFUROXIME SODIUM
     Indication: Product used for unknown indication
     Dosage: 3 G, UNK
     Route: 042
     Dates: start: 20110107
  2. SODIUM CHLORIDE [Concomitant]
     Active Substance: SODIUM CHLORIDE
     Indication: Product used for unknown indication
     Dosage: 250 ML, UNK
     Route: 041
     Dates: start: 20110107
  3. SODIUM CHLORIDE [Concomitant]
     Active Substance: SODIUM CHLORIDE
     Dosage: 500 ML,UNK
     Route: 041
     Dates: start: 20110107
  4. SODIUM CHLORIDE [Concomitant]
     Active Substance: SODIUM CHLORIDE
     Dosage: 20 ML
     Route: 041
     Dates: start: 20110107
  5. SODIUM CHLORIDE [Concomitant]
     Active Substance: SODIUM CHLORIDE
     Dosage: 500 ML
     Route: 041
     Dates: start: 20110107

REACTIONS (14)
  - Anaphylactic shock [Unknown]
  - Loss of consciousness [Recovered/Resolved]
  - Seizure [Unknown]
  - Cardiac arrest [Unknown]
  - Respiratory arrest [Recovered/Resolved]
  - Pruritus [Unknown]
  - Chest discomfort [Unknown]
  - Palpitations [Unknown]
  - Cyanosis [Unknown]
  - Pulse absent [Recovered/Resolved]
  - Sensory disturbance [Unknown]
  - Erythema [Unknown]
  - Electrocardiogram abnormal [Unknown]
  - Rash [Unknown]

NARRATIVE: CASE EVENT DATE: 20110107
